FAERS Safety Report 8082432-6 (Version None)
Quarter: 2012Q1

REPORT INFORMATION
  Report Type: 
  Country: None (occurrence: None)
  Receive Date: 20120127
  Receipt Date: 20110214
  Transmission Date: 20120608
  Serious: No
  Sender: FDA-Public Use
  Company Number: US-ABBOTT-11P-163-0706341-00

PATIENT
  Sex: Female
  Weight: 66.284 kg

DRUGS (3)
  1. IBUPROFEN (ADVIL) [Concomitant]
     Indication: PAIN
     Dosage: AS NEEDED
  2. HUMIRA [Suspect]
     Indication: RHEUMATOID ARTHRITIS
     Route: 050
     Dates: start: 20100101
  3. DICLOFENAC [Concomitant]
     Indication: PAIN IN EXTREMITY
     Dosage: AS NEEDED

REACTIONS (2)
  - URINARY TRACT INFECTION [None]
  - MICTURITION URGENCY [None]
